FAERS Safety Report 25799375 (Version 1)
Quarter: 2025Q3

REPORT INFORMATION
  Report Type: Report from Study
  Country: UY (occurrence: UY)
  Receive Date: 20250913
  Receipt Date: 20250913
  Transmission Date: 20251021
  Serious: Yes (Hospitalization)
  Sender: ABBVIE
  Company Number: UY-ABBVIE-6454582

PATIENT
  Age: 63 Year
  Sex: Male

DRUGS (1)
  1. RINVOQ [Suspect]
     Active Substance: UPADACITINIB
     Indication: Rheumatoid arthritis
     Dosage: FORM STRENGTH-15 MG
     Route: 048
     Dates: start: 20221020

REACTIONS (4)
  - Fall [Recovering/Resolving]
  - Pneumonia [Recovering/Resolving]
  - Shoulder fracture [Recovering/Resolving]
  - Wrist fracture [Recovering/Resolving]

NARRATIVE: CASE EVENT DATE: 20250101
